FAERS Safety Report 11913281 (Version 1)
Quarter: 2016Q1

REPORT INFORMATION
  Report Type: Spontaneous
  Country: US (occurrence: None)
  Receive Date: 20160112
  Receipt Date: 20160112
  Transmission Date: 20160526
  Serious: Yes (Disabling, Other)
  Sender: FDA-Public Use
  Company Number: None

PATIENT
  Age: 55 Year
  Sex: Male
  Weight: 86.18 kg

DRUGS (4)
  1. VITAMIN C [Concomitant]
     Active Substance: ASCORBIC ACID
  2. COQ10 [Concomitant]
     Active Substance: UBIDECARENONE
  3. CRESTOR [Suspect]
     Active Substance: ROSUVASTATIN CALCIUM
     Indication: BLOOD CHOLESTEROL INCREASED
     Dosage: 1 PILL ONCE DAILY TAKEN BY MOUTH
     Route: 048
     Dates: start: 20060104, end: 20131213
  4. POMEGRANATE EXTRACT [Concomitant]

REACTIONS (3)
  - Myalgia [None]
  - No therapeutic response [None]
  - Muscle spasms [None]

NARRATIVE: CASE EVENT DATE: 20060104
